FAERS Safety Report 7642150-2 (Version None)
Quarter: 2011Q3

REPORT INFORMATION
  Report Type: 
  Country: None (occurrence: None)
  Receive Date: 20110722
  Receipt Date: 20110708
  Transmission Date: 20111222
  Serious: Yes (Hospitalization)
  Sender: FDA-Public Use
  Company Number: 2011102029

PATIENT
  Age: 65 Year
  Sex: Male
  Weight: 62 kg

DRUGS (7)
  1. DALTEPARIN SODIUM [Suspect]
     Indication: ANGINA UNSTABLE
     Dosage: 2500 IU, 1XDAY, SUBCUTANEOUS
     Route: 058
     Dates: start: 20110128, end: 20110202
  2. DALTEPARIN SODIUM [Suspect]
     Indication: CORONARY ARTERY DISEASE
     Dosage: 2500 IU, 1XDAY, SUBCUTANEOUS
     Route: 058
     Dates: start: 20110128, end: 20110202
  3. RAMACE (RAMIPRIL) [Concomitant]
  4. CILOSTAZOL [Concomitant]
  5. ASPIRIN [Concomitant]
  6. METOPROLOL TARTRATE [Concomitant]
  7. CLOPITAB (CLOPIDOGREL) [Concomitant]

REACTIONS (7)
  - TRANSIENT ISCHAEMIC ATTACK [None]
  - DRUG INEFFECTIVE [None]
  - HYPOGLYCAEMIA [None]
  - HAEMOGLOBIN DECREASED [None]
  - FOOT AMPUTATION [None]
  - ARTERIOSCLEROSIS [None]
  - COAGULATION TIME SHORTENED [None]
